FAERS Safety Report 9875545 (Version 2)
Quarter: 2014Q1

REPORT INFORMATION
  Report Type: Other
  Country: US (occurrence: US)
  Receive Date: 20140206
  Receipt Date: 20140206
  Transmission Date: 20141002
  Serious: No
  Sender: FDA-Public Use
  Company Number: US-ACORDA-ACO_36191_2013

PATIENT
  Age: 43 Year
  Sex: Male
  Weight: 83.9 kg

DRUGS (4)
  1. AMPYRA [Suspect]
     Indication: GAIT DISTURBANCE
     Dosage: 10 MG, Q 12 HRS
     Route: 048
     Dates: start: 20130303, end: 201303
  2. COPAXONE [Concomitant]
     Indication: PRODUCT USED FOR UNKNOWN INDICATION
     Dosage: UNK
     Dates: start: 2010
  3. TIZANIDINE [Concomitant]
     Indication: MUSCLE SPASTICITY
     Dosage: 4 MG, BID
     Route: 048
  4. DIAZEPAM [Concomitant]
     Indication: MUSCLE SPASTICITY
     Dosage: 10 MG, BID
     Route: 048

REACTIONS (4)
  - Dysgeusia [Recovered/Resolved]
  - Fatigue [Recovered/Resolved]
  - Headache [Recovered/Resolved]
  - Nausea [Recovered/Resolved]
